FAERS Safety Report 23265480 (Version 1)
Quarter: 2023Q4

REPORT INFORMATION
  Report Type: Spontaneous
  Country: US (occurrence: US)
  Receive Date: 20231206
  Receipt Date: 20231206
  Transmission Date: 20240109
  Serious: Yes (Other)
  Sender: FDA-Public Use
  Company Number: US-STERISCIENCE B.V.-2022-ST-000530

PATIENT
  Age: 60 Year
  Sex: Female

DRUGS (5)
  1. BUPIVACAINE [Suspect]
     Active Substance: BUPIVACAINE
     Indication: Arthralgia
     Dosage: 0.5% BUPIVACAINE WITH EPINEPHRINE AT 2 ML,QH
  2. BUPIVACAINE [Suspect]
     Active Substance: BUPIVACAINE
     Dosage: UNK
     Route: 014
  3. BUPIVACAINE [Suspect]
     Active Substance: BUPIVACAINE
     Dosage: UNK
     Route: 014
  4. EPINEPHRINE [Suspect]
     Active Substance: EPINEPHRINE
     Indication: Arthralgia
     Dosage: 0.5% BUPIVACAINE WITH EPINEPHRINE AT 2 ML, QH
  5. BETAMETHASONE [Concomitant]
     Active Substance: BETAMETHASONE\BETAMETHASONE DIPROPIONATE
     Indication: Product use in unapproved indication
     Dosage: UNK
     Route: 014

REACTIONS (2)
  - Chondrolysis [Unknown]
  - Off label use [Unknown]
